FAERS Safety Report 11895074 (Version 1)
Quarter: 2016Q1

REPORT INFORMATION
  Report Type: Spontaneous
  Country: US (occurrence: None)
  Receive Date: 20160106
  Receipt Date: 20160106
  Transmission Date: 20160526
  Serious: Yes (Other)
  Sender: FDA-Public Use
  Company Number: None

PATIENT
  Age: 48 Year
  Sex: Female
  Weight: 67.13 kg

DRUGS (3)
  1. CREST PRO-HEALTH RINSE [Suspect]
     Active Substance: CETYLPYRIDINIUM CHLORIDE
     Indication: DENTAL DISORDER PROPHYLAXIS
     Dates: start: 20150609, end: 20150908
  2. IBUPROPHEN [Concomitant]
     Active Substance: IBUPROFEN
  3. PRILOSEC [Concomitant]
     Active Substance: OMEPRAZOLE MAGNESIUM

REACTIONS (1)
  - Tooth discolouration [None]

NARRATIVE: CASE EVENT DATE: 20150915
